FAERS Safety Report 12115086 (Version 3)
Quarter: 2016Q2

REPORT INFORMATION
  Report Type: Report from Study
  Country: BR (occurrence: BR)
  Receive Date: 20160225
  Receipt Date: 20160419
  Transmission Date: 20160815
  Serious: Yes (Hospitalization)
  Sender: FDA-Public Use
  Company Number: PHHY2016BR024657

PATIENT
  Sex: Female
  Weight: 66 kg

DRUGS (1)
  1. EXELON PATCH [Suspect]
     Active Substance: RIVASTIGMINE
     Indication: DEMENTIA ALZHEIMER^S TYPE
     Dosage: PATCH 5 CM2 (EVERY EVENING)
     Route: 062

REACTIONS (6)
  - Abasia [Unknown]
  - Mobility decreased [Unknown]
  - Aphasia [Unknown]
  - Gastric disorder [Unknown]
  - Feeding disorder [Unknown]
  - Seizure [Unknown]
